FAERS Safety Report 5514807-0 (Version None)
Quarter: 2007Q4

REPORT INFORMATION
  Report Type: 
  Country: None (occurrence: None)
  Receive Date: 20071113
  Receipt Date: 20071109
  Transmission Date: 20080405
  Serious: Yes (Other)
  Sender: FDA-Public Use
  Company Number: US-SHR-US-2007-021143

PATIENT
  Age: 58 Year
  Sex: Female
  Weight: 88.435 kg

DRUGS (2)
  1. BETASERON [Suspect]
     Indication: RELAPSING-REMITTING MULTIPLE SCLEROSIS
     Dosage: 8 MIU, EVERY 2D
     Route: 058
     Dates: start: 20070108
  2. BACLOFEN [Concomitant]

REACTIONS (2)
  - FEAR [None]
  - HALLUCINATION, VISUAL [None]
